FAERS Safety Report 17018391 (Version 1)
Quarter: 2019Q4

REPORT INFORMATION
  Report Type: Report from Study
  Country: US (occurrence: US)
  Receive Date: 20191111
  Receipt Date: 20191111
  Transmission Date: 20200122
  Serious: No
  Sender: FDA-Public Use
  Company Number: PHHY2018US029503

PATIENT
  Age: 23 Year
  Sex: Female

DRUGS (1)
  1. GILENYA [Suspect]
     Active Substance: FINGOLIMOD HYDROCHLORIDE
     Indication: MULTIPLE SCLEROSIS
     Dosage: UNK, QD
     Route: 048

REACTIONS (15)
  - Hypoaesthesia eye [Unknown]
  - Dizziness [Unknown]
  - Paraesthesia [Unknown]
  - Cognitive disorder [Unknown]
  - Anxiety [Unknown]
  - Night sweats [Unknown]
  - Back pain [Unknown]
  - Arthralgia [Unknown]
  - Exposure to toxic agent [Recovered/Resolved]
  - Oropharyngeal pain [Unknown]
  - Mood swings [Unknown]
  - Burning sensation [Recovered/Resolved]
  - Weight increased [Unknown]
  - Melanocytic naevus [Unknown]
  - Fatigue [Unknown]

NARRATIVE: CASE EVENT DATE: 20180404
